FAERS Safety Report 9353029 (Version 2)
Quarter: 2013Q4

REPORT INFORMATION
  Report Type: Spontaneous
  Country: JP (occurrence: JP)
  Receive Date: 20130618
  Receipt Date: 20131030
  Transmission Date: 20140711
  Serious: Yes (Hospitalization, Other)
  Sender: FDA-Public Use
  Company Number: JP-JNJFOC-20130606738

PATIENT
  Age: 86 Year
  Sex: Female
  Weight: 55 kg

DRUGS (5)
  1. ITRIZOLE [Suspect]
     Indication: ANTIFUNGAL PROPHYLAXIS
     Route: 048
     Dates: start: 20130131, end: 20130513
  2. BACTRAMIN [Concomitant]
     Indication: PRODUCT USED FOR UNKNOWN INDICATION
     Route: 048
     Dates: end: 20130514
  3. TAKEPRON [Concomitant]
     Indication: PRODUCT USED FOR UNKNOWN INDICATION
     Route: 048
     Dates: end: 20130514
  4. NILVADIPINE [Concomitant]
     Indication: PRODUCT USED FOR UNKNOWN INDICATION
     Route: 048
     Dates: end: 20130514
  5. NILVADIPINE [Concomitant]
     Indication: PRODUCT USED FOR UNKNOWN INDICATION
     Route: 048
     Dates: start: 20130516, end: 20130520

REACTIONS (5)
  - Blood bilirubin increased [Not Recovered/Not Resolved]
  - Drug-induced liver injury [Recovering/Resolving]
  - Glossodynia [Unknown]
  - Blood alkaline phosphatase increased [Recovering/Resolving]
  - Rhinorrhoea [Unknown]
